FAERS Safety Report 16573940 (Version 2)
Quarter: 2020Q3

REPORT INFORMATION
  Report Type: Spontaneous
  Country: DE (occurrence: DE)
  Receive Date: 20190715
  Receipt Date: 20200831
  Transmission Date: 20201102
  Serious: Yes (Hospitalization, Other)
  Sender: FDA-Public Use
  Company Number: DE-MYLANLABS-2019M1066170

PATIENT
  Sex: Female

DRUGS (50)
  1. VALSARTAN DURA [Suspect]
     Active Substance: VALSARTAN
     Dosage: 80 MILLIGRAM, BID ((IN THE MORNING AND EVENING)
  2. VALSARTAN. [Suspect]
     Active Substance: VALSARTAN
     Indication: HYPERTENSION
     Dosage: UNK
     Dates: start: 20181213, end: 201903
  3. L?THYROXIN ARISTO [Suspect]
     Active Substance: LEVOTHYROXINE SODIUM
     Indication: PRODUCT USED FOR UNKNOWN INDICATION
     Dosage: UNK
     Dates: start: 20161010
  4. L?THYROX HEXAL [Suspect]
     Active Substance: LEVOTHYROXINE SODIUM
     Dosage: UNK
     Dates: start: 20180305, end: 20180608
  5. SPIRIVA [Suspect]
     Active Substance: TIOTROPIUM BROMIDE MONOHYDRATE
     Dosage: UNK
     Dates: start: 20171214, end: 20180305
  6. CLARILIND [Suspect]
     Active Substance: CLARITHROMYCIN
     Indication: PRODUCT USED FOR UNKNOWN INDICATION
     Dosage: UNK
     Dates: start: 20160310
  7. FOSFOMYCIN EBERTH [Suspect]
     Active Substance: FOSFOMYCIN TROMETHAMINE
     Indication: PRODUCT USED FOR UNKNOWN INDICATION
     Dosage: UNK
     Dates: start: 20170819
  8. VALSARTAN DURA [Suspect]
     Active Substance: VALSARTAN
     Dosage: 240 MILLIGRAM, PM (NOT REPORTED THE EVENING TOTAL 240 MG DAILY)
     Dates: start: 201906, end: 201907
  9. VALSARTAN 1A PHARMA [Suspect]
     Active Substance: VALSARTAN
     Indication: HYPERTENSION
     Dosage: UNK
     Dates: start: 20170816, end: 201709
  10. AMLODIPIN DEXCEL [AMLODIPINE MALEATE] [Suspect]
     Active Substance: AMLODIPINE MALEATE
     Indication: PRODUCT USED FOR UNKNOWN INDICATION
     Dosage: UNK
     Dates: start: 20161024, end: 20170109
  11. SPIRIVA [Suspect]
     Active Substance: TIOTROPIUM BROMIDE MONOHYDRATE
     Dosage: UNK
     Dates: start: 20161117
  12. BERODUAL N [Suspect]
     Active Substance: FENOTEROL HYDROBROMIDE\IPRATROPIUM BROMIDE
     Indication: PRODUCT USED FOR UNKNOWN INDICATION
     Dosage: UNK
     Dates: start: 20160317, end: 20160920
  13. DICLOFENAC RATIOPHARM              /00372302/ [Suspect]
     Active Substance: DICLOFENAC SODIUM
     Indication: PRODUCT USED FOR UNKNOWN INDICATION
     Dosage: UNK
     Dates: start: 20171115, end: 20180608
  14. VALSARTAN DURA [Suspect]
     Active Substance: VALSARTAN
     Indication: HYPERTENSION
     Dosage: 160 MILLIGRAM, QD
     Dates: start: 201610, end: 201706
  15. METOPROLOL RATIOPHARM /00376902/ [Suspect]
     Active Substance: METOPROLOL TARTRATE
     Indication: PRODUCT USED FOR UNKNOWN INDICATION
     Dosage: UNK
     Dates: start: 20161010, end: 20161117
  16. METOPROLOL RATIOPHARM /00376902/ [Suspect]
     Active Substance: METOPROLOL TARTRATE
     Dosage: UNK
     Dates: start: 20171115, end: 20180305
  17. METOPROLOL ABZ [Suspect]
     Active Substance: METOPROLOL TARTRATE
     Indication: PRODUCT USED FOR UNKNOWN INDICATION
     Dosage: UNK
     Dates: start: 20160419
  18. AMLODIPIN DEXCEL [AMLODIPINE MALEATE] [Suspect]
     Active Substance: AMLODIPINE MALEATE
     Dosage: UNK
     Dates: start: 20171115
  19. SIMVA [Suspect]
     Active Substance: SIMVASTATIN
     Indication: PRODUCT USED FOR UNKNOWN INDICATION
     Dosage: UNK
     Dates: start: 20161010, end: 20170109
  20. L?THYROXIN?HENNING [Suspect]
     Active Substance: LEVOTHYROXINE SODIUM
     Indication: PRODUCT USED FOR UNKNOWN INDICATION
     Dosage: UNK
     Dates: start: 20160201
  21. L?THYROX HEXAL [Suspect]
     Active Substance: LEVOTHYROXINE SODIUM
     Dosage: UNK
     Dates: start: 20170619, end: 20171115
  22. SPIRIVA [Suspect]
     Active Substance: TIOTROPIUM BROMIDE MONOHYDRATE
     Indication: PRODUCT USED FOR UNKNOWN INDICATION
     Dosage: UNK
     Dates: start: 20161010, end: 20170210
  23. VALSARTAN DURA [Suspect]
     Active Substance: VALSARTAN
     Dosage: 240 MILLIGRAM, QD (1 IN MORNING AND 1/2 IN EVENING)
     Dates: start: 201709, end: 201811
  24. SPIRIVA [Suspect]
     Active Substance: TIOTROPIUM BROMIDE MONOHYDRATE
     Dosage: UNK
     Dates: start: 20161216, end: 20170410
  25. AZITHROMYCIN HEC [Suspect]
     Active Substance: AZITHROMYCIN
     Indication: PRODUCT USED FOR UNKNOWN INDICATION
     Dosage: UNK
     Dates: start: 20160920
  26. JEXT [Suspect]
     Active Substance: EPINEPHRINE BITARTRATE
     Indication: PRODUCT USED FOR UNKNOWN INDICATION
     Dosage: UNK
     Dates: start: 20171012
  27. METOPROLOL RATIOPHARM /00376902/ [Suspect]
     Active Substance: METOPROLOL TARTRATE
     Dosage: UNK
     Dates: start: 20170109, end: 20170323
  28. SIMVA [Suspect]
     Active Substance: SIMVASTATIN
     Dosage: UNK
     Dates: start: 20170410, end: 20170619
  29. MINOCYCLIN RATIOPHARM [Suspect]
     Active Substance: MINOCYCLINE HYDROCHLORIDE
     Indication: PRODUCT USED FOR UNKNOWN INDICATION
     Dosage: UNK
     Dates: start: 20170814
  30. SKID [MINOCYCLINE HYDROCHLORIDE] [Suspect]
     Active Substance: MINOCYCLINE HYDROCHLORIDE
     Indication: PRODUCT USED FOR UNKNOWN INDICATION
     Dosage: UNK
     Dates: start: 20161216
  31. VALSACOR [Suspect]
     Active Substance: VALSARTAN
     Dosage: UNK
     Dates: start: 20190521, end: 20191021
  32. VALSACOR [Suspect]
     Active Substance: VALSARTAN
     Indication: HYPERTENSION
     Dosage: UNK
     Dates: start: 20190716, end: 20191017
  33. METOPROLOL RATIOPHARM /00376902/ [Suspect]
     Active Substance: METOPROLOL TARTRATE
     Dosage: UNK
     Dates: start: 20170814, end: 20171005
  34. METOPROLOL RATIOPHARM /00376902/ [Suspect]
     Active Substance: METOPROLOL TARTRATE
     Dosage: UNK
     Dates: start: 20180608
  35. RAMIPRIL. [Suspect]
     Active Substance: RAMIPRIL
     Indication: PRODUCT USED FOR UNKNOWN INDICATION
     Dosage: UNK
     Dates: start: 20160412
  36. L?THYROX HEXAL [Suspect]
     Active Substance: LEVOTHYROXINE SODIUM
     Indication: PRODUCT USED FOR UNKNOWN INDICATION
     Dosage: UNK
     Dates: start: 20170109, end: 20170410
  37. PANTOPRAZOL HEUMANN [Suspect]
     Active Substance: PANTOPRAZOLE SODIUM
     Indication: PRODUCT USED FOR UNKNOWN INDICATION
     Dosage: UNK
     Dates: start: 20161216
  38. METOPROLOL RATIOPHARM /00376902/ [Suspect]
     Active Substance: METOPROLOL TARTRATE
     Dosage: UNK
     Dates: start: 20170515, end: 20170619
  39. SPIRIVA [Suspect]
     Active Substance: TIOTROPIUM BROMIDE MONOHYDRATE
     Dosage: UNK
     Dates: start: 20170619, end: 20170914
  40. SPIRIVA [Suspect]
     Active Substance: TIOTROPIUM BROMIDE MONOHYDRATE
     Dosage: UNK
     Dates: start: 20180608
  41. TAVOR (LORAZEPAM) [Suspect]
     Active Substance: LORAZEPAM
     Indication: PRODUCT USED FOR UNKNOWN INDICATION
     Dosage: UNK
     Dates: start: 20180713
  42. CEFUROXIM HEUMANN [Suspect]
     Active Substance: CEFUROXIME AXETIL
     Indication: PRODUCT USED FOR UNKNOWN INDICATION
     Dosage: UNK
     Dates: start: 20170731
  43. DICLO 1A PHARMA [Suspect]
     Active Substance: DICLOFENAC SODIUM
     Indication: PRODUCT USED FOR UNKNOWN INDICATION
     Dosage: UNK
     Dates: start: 20160303
  44. VALSACOR [Suspect]
     Active Substance: VALSARTAN
     Indication: HYPERTENSION
     Dosage: UNK
     Dates: start: 20190304, end: 20190423
  45. AMLODIPIN DEXCEL [AMLODIPINE MALEATE] [Suspect]
     Active Substance: AMLODIPINE MALEATE
     Dosage: UNK
     Dates: start: 20170410, end: 20170619
  46. SIMVA [Suspect]
     Active Substance: SIMVASTATIN
     Indication: PRODUCT USED FOR UNKNOWN INDICATION
     Dosage: UNK
     Dates: start: 20160512
  47. L?THYROXIN ARISTO [Suspect]
     Active Substance: LEVOTHYROXINE SODIUM
     Indication: PRODUCT USED FOR UNKNOWN INDICATION
     Dosage: UNK
     Dates: start: 20160412
  48. CEFUROX BASICS SUN [Suspect]
     Active Substance: CEFUROXIME AXETIL
     Indication: PRODUCT USED FOR UNKNOWN INDICATION
     Dosage: UNK
     Dates: start: 20160927, end: 20171005
  49. PREDNISOLON                        /00016201/ [Suspect]
     Active Substance: PREDNISOLONE
     Indication: PRODUCT USED FOR UNKNOWN INDICATION
     Dosage: UNK
     Dates: start: 20160404
  50. CELESTENE N [Suspect]
     Active Substance: BETAMETHASONE
     Indication: PRODUCT USED FOR UNKNOWN INDICATION
     Dosage: UNK
     Dates: start: 20171012

REACTIONS (13)
  - Hypertension [Unknown]
  - Dizziness [Unknown]
  - Panic attack [Unknown]
  - Fatigue [Unknown]
  - Hyperhidrosis [Unknown]
  - Anxiety [Unknown]
  - Nausea [Unknown]
  - Dyspnoea [Unknown]
  - Impaired quality of life [Not Recovered/Not Resolved]
  - Fear of disease [Unknown]
  - Sense of oppression [Unknown]
  - Mental impairment [Not Recovered/Not Resolved]
  - Depression [Not Recovered/Not Resolved]
